FAERS Safety Report 5727753-4 (Version None)
Quarter: 2008Q2

REPORT INFORMATION
  Report Type: 
  Country: None (occurrence: None)
  Receive Date: 20080430
  Receipt Date: 20080416
  Transmission Date: 20081010
  Serious: Yes (Other)
  Sender: FDA-Public Use
  Company Number: 340011J08USA

PATIENT
  Age: 30 Year
  Sex: Female
  Weight: 50.8029 kg

DRUGS (4)
  1. OVIDREL [Suspect]
     Indication: INFERTILITY
     Dosage: ONCE, SUBCUTANEOUS; ONCE, SUBCUTANEOUS
     Route: 058
     Dates: start: 20070101, end: 20070101
  2. OVIDREL [Suspect]
     Indication: INFERTILITY
     Dosage: ONCE, SUBCUTANEOUS; ONCE, SUBCUTANEOUS
     Route: 058
     Dates: start: 20080330, end: 20080330
  3. MENOPUR [Suspect]
     Dates: start: 20070101, end: 20070101
  4. MENOPUR [Suspect]
     Dates: start: 20080301

REACTIONS (4)
  - ABORTION SPONTANEOUS [None]
  - DRUG EXPOSURE DURING PREGNANCY [None]
  - MATERNAL DRUGS AFFECTING FOETUS [None]
  - PREGNANCY [None]
